FAERS Safety Report 8319324-0 (Version None)
Quarter: 2012Q2

REPORT INFORMATION
  Report Type: 
  Country: None (occurrence: None)
  Receive Date: 20120427
  Receipt Date: 20120423
  Transmission Date: 20120825
  Serious: Yes (Hospitalization)
  Sender: FDA-Public Use
  Company Number: US-BAYER-2011-089478

PATIENT
  Age: 28 Year
  Sex: Female
  Weight: 79.365 kg

DRUGS (12)
  1. YASMIN [Suspect]
     Dosage: UNK
     Route: 048
     Dates: start: 20081101, end: 20090701
  2. YASMIN [Suspect]
     Indication: CONTRACEPTION
     Dosage: UNK
     Route: 048
     Dates: start: 20050401, end: 20060101
  3. NAPROSYN [Concomitant]
  4. PREDNISONE [Concomitant]
     Indication: SYNOVITIS
  5. DROSPIRENONE AND ETHINYL ESTRADIOL [Suspect]
     Indication: CONTRACEPTION
     Dosage: UNK
     Route: 048
     Dates: start: 20050401, end: 20060101
  6. PERCOCET [Concomitant]
  7. PREDNISONE [Concomitant]
     Indication: PLEURISY
  8. DROSPIRENONE AND ETHINYL ESTRADIOL [Suspect]
     Dosage: UNK
     Route: 048
     Dates: start: 20081101, end: 20090701
  9. METHOTREXATE [Concomitant]
     Dosage: UNK
     Dates: start: 20090214
  10. VICODIN [Concomitant]
  11. ZITHROMAX [Concomitant]
  12. ANTACIDS [Concomitant]

REACTIONS (8)
  - PNEUMOTHORAX [None]
  - DYSPNOEA [None]
  - PULMONARY EMBOLISM [None]
  - PAINFUL RESPIRATION [None]
  - MENTAL DISORDER [None]
  - CHEST PAIN [None]
  - ATELECTASIS [None]
  - PAIN [None]
